FAERS Safety Report 4986685-X (Version None)
Quarter: 2006Q2

REPORT INFORMATION
  Report Type: 
  Country: None (occurrence: None)
  Receive Date: 20060428
  Receipt Date: 20050817
  Transmission Date: 20061013
  Serious: Yes (Hospitalization, Disabling, Other)
  Sender: FDA-Public Use
  Company Number: US-MERCK-0508USA03251

PATIENT
  Age: 44 Year
  Sex: Male
  Weight: 116 kg

DRUGS (3)
  1. ACETAMINOPHEN AND PROPOXYPHENE HYDROCHLORIDE [Concomitant]
     Route: 065
     Dates: start: 20020709
  2. VIOXX [Suspect]
     Indication: ARTHRALGIA
     Route: 048
     Dates: start: 20010529, end: 20020910
  3. VIOXX [Suspect]
     Indication: HEADACHE
     Route: 048
     Dates: start: 20010529, end: 20020910

REACTIONS (14)
  - ABDOMINAL PAIN [None]
  - ANEURYSM [None]
  - ANXIETY [None]
  - ASTHENIA [None]
  - CEREBROVASCULAR ACCIDENT [None]
  - CHEST PAIN [None]
  - DIZZINESS [None]
  - DYSPNOEA [None]
  - HEADACHE [None]
  - HEMIPARESIS [None]
  - HYPERTENSION [None]
  - PAIN IN EXTREMITY [None]
  - RETINAL TEAR [None]
  - SUBARACHNOID HAEMORRHAGE [None]
